FAERS Safety Report 5231875-4 (Version None)
Quarter: 2007Q1

REPORT INFORMATION
  Report Type: 
  Country: None (occurrence: None)
  Receive Date: 20070206
  Receipt Date: 20070125
  Transmission Date: 20070707
  Serious: Yes (Other)
  Sender: FDA-Public Use
  Company Number: JP-PFIZER INC-2007007058

PATIENT
  Age: 36 Year
  Sex: Female

DRUGS (1)
  1. SULFASALAZINE [Suspect]
     Indication: COLITIS ULCERATIVE
     Route: 048

REACTIONS (2)
  - ANAEMIA MEGALOBLASTIC [None]
  - HISTIOCYTOSIS HAEMATOPHAGIC [None]
